FAERS Safety Report 5655251-5 (Version None)
Quarter: 2008Q1

REPORT INFORMATION
  Report Type: 
  Country: None (occurrence: None)
  Receive Date: 20080307
  Receipt Date: 20080303
  Transmission Date: 20080703
  Serious: Yes (Other)
  Sender: FDA-Public Use
  Company Number: B0464487A

PATIENT
  Sex: Female

DRUGS (4)
  1. LAMICTAL [Suspect]
     Indication: EPILEPSY
     Dosage: 300MG PER DAY
     Route: 065
     Dates: start: 20000101
  2. ACETAMINOPHEN [Concomitant]
     Dosage: 3G PER DAY
     Route: 065
  3. RIVOTRIL [Concomitant]
     Indication: EPILEPSY
     Dosage: 1MG PER DAY
  4. KODEIN [Concomitant]
     Dosage: 75MG PER DAY

REACTIONS (5)
  - DEPRESSED LEVEL OF CONSCIOUSNESS [None]
  - OSTEOARTHRITIS [None]
  - OSTEOPOROSIS [None]
  - VERTIGO [None]
  - VISION BLURRED [None]
